FAERS Safety Report 16705275 (Version 2)
Quarter: 2019Q3

REPORT INFORMATION
  Report Type: Spontaneous
  Country: US (occurrence: US)
  Receive Date: 20190815
  Receipt Date: 20190816
  Transmission Date: 20191004
  Serious: No
  Sender: FDA-Public Use
  Company Number: US-TEVA-2019-US-1091081

PATIENT
  Sex: Female

DRUGS (3)
  1. LIDOCAINE 5% PATCH [Suspect]
     Active Substance: LIDOCAINE
     Indication: ARTHRALGIA
  2. LIDOCAINE 5% PATCH [Suspect]
     Active Substance: LIDOCAINE
     Indication: BACK PAIN
  3. LIDOCAINE 5% PATCH [Suspect]
     Active Substance: LIDOCAINE
     Indication: NEURALGIA
     Dosage: FREQUENCY: Q12 HRS AND PRN
     Route: 062

REACTIONS (10)
  - Scar [Unknown]
  - Product quality issue [Unknown]
  - Drug ineffective [Unknown]
  - Application site burn [Unknown]
  - Application site pruritus [Unknown]
  - Skin texture abnormal [Unknown]
  - Pain [Unknown]
  - Application site erythema [Unknown]
  - Skin erosion [Unknown]
  - Application site vesicles [Unknown]

NARRATIVE: CASE EVENT DATE: 20190728
